FAERS Safety Report 8797042 (Version 1)
Quarter: 2012Q4

REPORT INFORMATION
  Report Type: 
  Country: ZA (occurrence: ZA)
  Receive Date: 20120919
  Receipt Date: 20120919
  Transmission Date: 20130627
  Serious: Yes (Disabling)
  Sender: FDA-Public Use
  Company Number: ZA-GLAXOSMITHKLINE-B0700240A

PATIENT
  Sex: Female

DRUGS (12)
  1. FLIXOTIDE [Suspect]
     Indication: ASTHMA
     Dosage: 1000MCG Twice per day
     Route: 055
     Dates: start: 1999
  2. CORTIZONE [Concomitant]
     Indication: PRODUCT USED FOR UNKNOWN INDICATION
     Dates: start: 1999, end: 20080626
  3. UNKNOWN MEDICATION [Concomitant]
  4. METHOTREXATE [Concomitant]
     Dosage: 5MG Alternate days
  5. FOLIC ACID [Concomitant]
     Dosage: 10MG Alternate days
  6. SINGULAIR [Concomitant]
     Dosage: 10MG At night
  7. NEULIN [Concomitant]
     Dosage: .5TAB Twice per day
  8. INTRAGAM [Concomitant]
     Dosage: 10ML Twice per day
     Route: 030
  9. FLIXONASE [Concomitant]
     Dosage: 2SPR Twice per day
     Route: 045
  10. DUOLIN [Concomitant]
     Dosage: 1AMP Three times per day
  11. PULMICORT [Concomitant]
     Dosage: 1AMP Three times per day
  12. FUNGIZONE [Concomitant]

REACTIONS (18)
  - Addison^s disease [Not Recovered/Not Resolved]
  - Skin atrophy [Unknown]
  - Oesophageal candidiasis [Unknown]
  - Oral candidiasis [Unknown]
  - Cushingoid [Unknown]
  - Blood cortisol decreased [Unknown]
  - Blood corticotrophin decreased [Unknown]
  - Productive cough [Unknown]
  - Dyspnoea [Unknown]
  - Wheezing [Unknown]
  - Respiratory tract infection [Unknown]
  - Immune system disorder [Unknown]
  - Rhinorrhoea [Unknown]
  - Nasal obstruction [Unknown]
  - Nasal discomfort [Unknown]
  - Sneezing [Unknown]
  - Dry mouth [Unknown]
  - Upper-airway cough syndrome [Unknown]
